FAERS Safety Report 13582331 (Version 1)
Quarter: 2017Q2

REPORT INFORMATION
  Report Type: Spontaneous
  Country: US (occurrence: US)
  Receive Date: 20170525
  Receipt Date: 20170525
  Transmission Date: 20170830
  Serious: Yes (Hospitalization)
  Sender: FDA-Public Use
  Company Number: US-NOVOPROD-546275

PATIENT
  Age: 25 Year
  Sex: Female

DRUGS (1)
  1. LEVEMIR [Suspect]
     Active Substance: INSULIN DETEMIR
     Indication: TYPE 1 DIABETES MELLITUS
     Dosage: 30 U, QD
     Route: 058
     Dates: start: 2015, end: 2015

REACTIONS (3)
  - Seizure [Recovered/Resolved]
  - Hypersensitivity [Recovered/Resolved]
  - Moyamoya disease [Not Recovered/Not Resolved]

NARRATIVE: CASE EVENT DATE: 2015
